FAERS Safety Report 4886844-0 (Version None)
Quarter: 2006Q1

REPORT INFORMATION
  Report Type: 
  Country: None (occurrence: None)
  Receive Date: 20060120
  Receipt Date: 20051206
  Transmission Date: 20060701
  Serious: Yes (Hospitalization)
  Sender: FDA-Public Use
  Company Number: JP-ABBOTT-05P-087-0318882-00

PATIENT
  Sex: Male

DRUGS (2)
  1. KLARICID [Suspect]
     Indication: PNEUMONIA MYCOPLASMAL
     Route: 048
     Dates: start: 20051108, end: 20051128
  2. BUCILLAMINE [Suspect]
     Indication: RHEUMATOID ARTHRITIS
     Route: 048
     Dates: start: 20050920, end: 20051128

REACTIONS (1)
  - INTERSTITIAL LUNG DISEASE [None]
